FAERS Safety Report 16472547 (Version 8)
Quarter: 2019Q3

REPORT INFORMATION
  Report Type: Report from Study
  Country: US (occurrence: US)
  Receive Date: 20190625
  Receipt Date: 20190925
  Transmission Date: 20191004
  Serious: Yes (Other)
  Sender: FDA-Public Use
  Company Number: US-TESAROUBC-2019-TSO02185-US

PATIENT
  Age: 62 Year
  Sex: Female

DRUGS (1)
  1. NIRAPARIB [Suspect]
     Active Substance: NIRAPARIB
     Indication: OVARIAN CANCER
     Dosage: 100 MG, QPM
     Route: 048
     Dates: start: 20190606

REACTIONS (26)
  - Dehydration [Unknown]
  - Joint warmth [Recovering/Resolving]
  - Joint swelling [Recovering/Resolving]
  - Dry mouth [Unknown]
  - Asthenia [Unknown]
  - Haemoglobin decreased [Unknown]
  - Laboratory test abnormal [Unknown]
  - Sinus disorder [Not Recovered/Not Resolved]
  - Dyspepsia [Not Recovered/Not Resolved]
  - Haematocrit decreased [Unknown]
  - Cataract [Unknown]
  - Stress [Unknown]
  - Nausea [Recovered/Resolved]
  - Vomiting [Unknown]
  - Feeling abnormal [Not Recovered/Not Resolved]
  - Decreased appetite [Unknown]
  - White blood cell count decreased [Unknown]
  - Red blood cell count decreased [Unknown]
  - Constipation [Not Recovered/Not Resolved]
  - Fatigue [Not Recovered/Not Resolved]
  - Nasal congestion [Unknown]
  - Blood glucose increased [Unknown]
  - Underdose [Unknown]
  - Product dose omission [Unknown]
  - Basal cell carcinoma [Unknown]
  - Oral pain [Unknown]

NARRATIVE: CASE EVENT DATE: 20190625
